FAERS Safety Report 13614265 (Version 1)
Quarter: 2017Q2

REPORT INFORMATION
  Report Type: Spontaneous
  Country: JP (occurrence: JP)
  Receive Date: 20170606
  Receipt Date: 20170606
  Transmission Date: 20170830
  Serious: Yes (Other)
  Sender: FDA-Public Use
  Company Number: JP-MYLANLABS-2017M1033463

PATIENT

DRUGS (6)
  1. VINCRISTINE [Suspect]
     Active Substance: VINCRISTINE
     Indication: LYMPHOMA
     Route: 050
  2. CYCLOPHOSPHAMIDE. [Suspect]
     Active Substance: CYCLOPHOSPHAMIDE
     Indication: LYMPHOMA
     Route: 050
  3. RITUXIMAB [Suspect]
     Active Substance: RITUXIMAB
     Indication: LYMPHOMA
     Route: 050
  4. DOXORUBICIN [Suspect]
     Active Substance: DOXORUBICIN
     Indication: LYMPHOMA
     Dosage: 75MG/BODY
     Route: 050
  5. DEXRAZOXANE. [Suspect]
     Active Substance: DEXRAZOXANE
     Dosage: DAY 3: 500MG/M2
     Route: 050
  6. DEXRAZOXANE. [Suspect]
     Active Substance: DEXRAZOXANE
     Indication: EXTRAVASATION
     Dosage: 1000MG/M2 ON DAYS 1 AND 2, DOSE REDUCED ON DAY 3
     Route: 050

REACTIONS (5)
  - Headache [Recovered/Resolved]
  - Neutropenia [Recovering/Resolving]
  - Extravasation [Recovered/Resolved]
  - Vomiting [Recovered/Resolved]
  - Nausea [Recovered/Resolved]
